FAERS Safety Report 15929669 (Version 1)
Quarter: 2019Q1

REPORT INFORMATION
  Report Type: Spontaneous
  Country: FR (occurrence: FR)
  Receive Date: 20190206
  Receipt Date: 20190206
  Transmission Date: 20190417
  Serious: Yes (Other)
  Sender: FDA-Public Use
  Company Number: PHHY2019FR027612

PATIENT
  Age: 6 Year
  Sex: Male

DRUGS (3)
  1. DIAMOX SEQUELS [Suspect]
     Active Substance: ACETAZOLAMIDE
     Indication: RETINITIS PIGMENTOSA
     Dosage: 1 DF, QD
     Route: 048
     Dates: start: 20180320, end: 20180725
  2. DIFFU K [Concomitant]
     Active Substance: POTASSIUM CHLORIDE
     Indication: PRODUCT USED FOR UNKNOWN INDICATION
     Dosage: 1 DF, QD
     Route: 048
     Dates: start: 20180320, end: 20180725
  3. AZOPT [Suspect]
     Active Substance: BRINZOLAMIDE
     Indication: RETINITIS PIGMENTOSA
     Dosage: 2 GTT, QD
     Route: 047
     Dates: start: 20180320, end: 20180725

REACTIONS (4)
  - Epistaxis [Recovered/Resolved]
  - Abdominal pain [Recovered/Resolved]
  - Asthenia [Recovered/Resolved]
  - Headache [Recovered/Resolved]

NARRATIVE: CASE EVENT DATE: 20180320
